FAERS Safety Report 7079899-9 (Version None)
Quarter: 2010Q4

REPORT INFORMATION
  Report Type: 
  Country: None (occurrence: None)
  Receive Date: 20101102
  Receipt Date: 20101026
  Transmission Date: 20110411
  Serious: Yes (Other)
  Sender: FDA-Public Use
  Company Number: US-PFIZER INC-2010137044

PATIENT
  Sex: Female
  Weight: 71 kg

DRUGS (6)
  1. CHANTIX [Suspect]
     Indication: SMOKING CESSATION THERAPY
     Dosage: 0.5 MG, 1X/DAY
     Route: 048
  2. LITHIUM [Concomitant]
     Indication: BIPOLAR DISORDER
     Dosage: UNK
  3. LAMICTAL [Concomitant]
     Dosage: UNK
  4. CYMBALTA [Concomitant]
     Indication: DEPRESSION
     Dosage: UNK
  5. IBUPROFEN [Concomitant]
     Dosage: UNK
  6. RANITIDINE [Concomitant]
     Indication: GASTROOESOPHAGEAL REFLUX DISEASE
     Dosage: UNK

REACTIONS (3)
  - BIPOLAR I DISORDER [None]
  - BORDERLINE PERSONALITY DISORDER [None]
  - DEPRESSION [None]
